FAERS Safety Report 17412186 (Version 1)
Quarter: 2020Q1

REPORT INFORMATION
  Report Type: Spontaneous
  Country: IN (occurrence: IN)
  Receive Date: 20200213
  Receipt Date: 20200213
  Transmission Date: 20200409
  Serious: Yes (Other)
  Sender: FDA-Public Use
  Company Number: IN-QUAGEN PHARMA LLC-2020QUALIT00034

PATIENT
  Age: 25 Year
  Sex: Male

DRUGS (1)
  1. CETIRIZINE HYDROCHLORIDE ORAL SOLUTION USP, 5MG/5ML [Suspect]
     Active Substance: CETIRIZINE HYDROCHLORIDE

REACTIONS (3)
  - Cataract subcapsular [Unknown]
  - Photophobia [Unknown]
  - Vision blurred [Unknown]
